FAERS Safety Report 16543361 (Version 1)
Quarter: 2019Q3

REPORT INFORMATION
  Report Type: Spontaneous
  Country: TH (occurrence: TH)
  Receive Date: 20190709
  Receipt Date: 20190709
  Transmission Date: 20191004
  Serious: Yes (Other)
  Sender: FDA-Public Use
  Company Number: TH-ROCHE-2347388

PATIENT
  Age: 7 Year
  Sex: Male

DRUGS (2)
  1. TAMIFLU [Suspect]
     Active Substance: OSELTAMIVIR PHOSPHATE
     Indication: INFLUENZA
  2. TAMIFLU [Suspect]
     Active Substance: OSELTAMIVIR PHOSPHATE
     Indication: INFLUENZA
     Route: 065

REACTIONS (6)
  - Disorientation [Unknown]
  - Suicide attempt [Unknown]
  - Restlessness [Unknown]
  - Loss of consciousness [Unknown]
  - Delirium [Unknown]
  - Panic disorder [Unknown]

NARRATIVE: CASE EVENT DATE: 201901
